FAERS Safety Report 24562222 (Version 1)
Quarter: 2024Q4

REPORT INFORMATION
  Report Type: Spontaneous
  Country: US (occurrence: US)
  Receive Date: 20241029
  Receipt Date: 20241029
  Transmission Date: 20250114
  Serious: No
  Sender: BAYER HEALTHCARE LLC
  Company Number: US-BAYER-2024A154712

PATIENT
  Sex: Female

DRUGS (1)
  1. MIRALAX [Suspect]
     Active Substance: POLYETHYLENE GLYCOL 3350
     Indication: Gastrointestinal disorder
     Dosage: 1 DF, QD
     Route: 048
     Dates: start: 20241025

REACTIONS (2)
  - Abnormal faeces [Unknown]
  - Defaecation urgency [None]

NARRATIVE: CASE EVENT DATE: 20241029
